FAERS Safety Report 8216317-9 (Version None)
Quarter: 2012Q1

REPORT INFORMATION
  Report Type: 
  Country: None (occurrence: None)
  Receive Date: 20120316
  Receipt Date: 20120308
  Transmission Date: 20120608
  Serious: Yes (Other)
  Sender: FDA-Public Use
  Company Number: PHEH2010US03876

PATIENT
  Sex: Male

DRUGS (48)
  1. KANTREX [Concomitant]
  2. GENTAMICIN [Concomitant]
  3. METHADONE HCL [Concomitant]
  4. ALLEGRA [Concomitant]
  5. HYTRIN [Concomitant]
  6. OXYCODONE HCL [Concomitant]
  7. TEMAZEPAM [Concomitant]
  8. ANCEF [Concomitant]
  9. CYTOTEC [Concomitant]
  10. CLONAZEPAM [Concomitant]
  11. HYDROCORTISONE [Concomitant]
  12. NEXIUM [Concomitant]
  13. VERSED [Concomitant]
  14. ZOMETA [Suspect]
     Indication: PROSTATE CANCER METASTATIC
  15. BACITRACIN [Concomitant]
  16. HEPARIN [Concomitant]
  17. PRILOSEC [Concomitant]
  18. EFFEXOR [Concomitant]
  19. ANTIVERT [Concomitant]
  20. SOMA [Concomitant]
  21. SENNA [Concomitant]
  22. PERCOCET [Concomitant]
  23. MORPHINE [Concomitant]
  24. HYZAAR [Concomitant]
  25. REGELAN [Concomitant]
  26. ZOMETA [Suspect]
     Indication: METASTASES TO BONE
     Dosage: 4 MG, MONTHLY
     Dates: end: 20080528
  27. PROMETHAZINE [Concomitant]
  28. INDIGO CARMINE [Concomitant]
  29. KETOCONAZOLE [Concomitant]
  30. PEPCID [Concomitant]
  31. LEXAPRO [Concomitant]
  32. ZOFRAN [Concomitant]
  33. AREDIA [Suspect]
     Indication: PROSTATE CANCER METASTATIC
     Dosage: 90 MG, MONTHLY
  34. WARFARIN SODIUM [Concomitant]
  35. CYMBALTA [Concomitant]
  36. COUMADIN [Concomitant]
  37. ZYVOX [Concomitant]
  38. CHEMOTHERAPEUTICS [Concomitant]
  39. METHADONE HCL [Concomitant]
  40. CARVEDILOL [Concomitant]
  41. SENOKOT [Concomitant]
  42. NEOSPORIN [Concomitant]
  43. VANCOMYCIN [Concomitant]
  44. MARCAINE [Concomitant]
  45. ZOCOR [Concomitant]
  46. FLUNISOLIDE [Concomitant]
  47. MISOPROSTOL [Concomitant]
  48. INDOCIN [Concomitant]

REACTIONS (40)
  - PAIN [None]
  - ORAL INFECTION [None]
  - DEFORMITY [None]
  - SWELLING [None]
  - TOBACCO ABUSE [None]
  - AMNESIA [None]
  - DIZZINESS [None]
  - OSTEONECROSIS OF JAW [None]
  - ANHEDONIA [None]
  - SPINAL CORD COMPRESSION [None]
  - VENTRICULAR HYPERTROPHY [None]
  - TOOTHACHE [None]
  - VISUAL IMPAIRMENT [None]
  - TRICUSPID VALVE INCOMPETENCE [None]
  - BONE LOSS [None]
  - ERYTHEMA [None]
  - HYPERTENSION [None]
  - NEURITIS [None]
  - MITRAL VALVE INCOMPETENCE [None]
  - OTITIS MEDIA [None]
  - CONFUSIONAL STATE [None]
  - PAIN IN EXTREMITY [None]
  - DIVERTICULUM [None]
  - SLEEP APNOEA SYNDROME [None]
  - HAEMORRHAGIC ANAEMIA [None]
  - ANXIETY [None]
  - DISABILITY [None]
  - PATHOLOGICAL FRACTURE [None]
  - HIP FRACTURE [None]
  - DENTAL CARIES [None]
  - BACK PAIN [None]
  - PAIN IN JAW [None]
  - CEREBROVASCULAR ACCIDENT [None]
  - CATARACT [None]
  - ARTHRALGIA [None]
  - DYSPNOEA [None]
  - OSTEOMYELITIS [None]
  - EXPOSED BONE IN JAW [None]
  - CELLULITIS [None]
  - NEUROPATHY PERIPHERAL [None]
